FAERS Safety Report 7044812-7 (Version None)
Quarter: 2010Q4

REPORT INFORMATION
  Report Type: 
  Country: None (occurrence: None)
  Receive Date: 20101014
  Receipt Date: 20100930
  Transmission Date: 20110411
  Serious: Yes (Hospitalization, Other)
  Sender: FDA-Public Use
  Company Number: PHHY2010GR65235

PATIENT
  Sex: Female
  Weight: 73.5 kg

DRUGS (3)
  1. ICL670A ICL+DISTAB [Suspect]
     Indication: HAEMOSIDEROSIS
     Dosage: 2125MG (29MG/KG), UNK
     Route: 048
  2. CARVEDILOL [Concomitant]
     Indication: ATRIAL FIBRILLATION
     Dosage: 1 X 2, UNK
     Dates: start: 20100720
  3. SALOSPIR [Concomitant]
     Indication: ATRIAL FIBRILLATION
     Dosage: 1 X 1, UNK
     Dates: start: 20100720

REACTIONS (2)
  - ATRIAL FIBRILLATION [None]
  - EJECTION FRACTION DECREASED [None]
